FAERS Safety Report 25716676 (Version 1)
Quarter: 2025Q3

REPORT INFORMATION
  Report Type: Report from Study
  Country: CA (occurrence: CA)
  Receive Date: 20250822
  Receipt Date: 20250822
  Transmission Date: 20251020
  Serious: Yes (Other)
  Sender: TEVA
  Company Number: CA-TEVA-VS-3364076

PATIENT
  Age: 72 Year
  Sex: Female

DRUGS (1)
  1. TERIPARATIDE [Suspect]
     Active Substance: TERIPARATIDE
     Indication: Osteoporosis
     Route: 030
     Dates: start: 20230606

REACTIONS (3)
  - Central vision loss [Unknown]
  - Dysarthria [Unknown]
  - Migraine [Unknown]

NARRATIVE: CASE EVENT DATE: 20241001
